FAERS Safety Report 16991673 (Version 7)
Quarter: 2020Q2

REPORT INFORMATION
  Report Type: Report from Study
  Country: None (occurrence: FR)
  Receive Date: 20191104
  Receipt Date: 20200629
  Transmission Date: 20200713
  Serious: Yes (Death, Other)
  Sender: FDA-Public Use
  Company Number: FR-ABBVIE-19K-056-2984036-00

PATIENT
  Age: 75 Year
  Sex: Male
  Weight: 103 kg

DRUGS (4)
  1. VENCLYXTO [Suspect]
     Active Substance: VENETOCLAX
     Route: 048
     Dates: start: 20190823
  2. RASBURICASE [Concomitant]
     Active Substance: RASBURICASE
     Indication: PROPHYLAXIS
     Dates: start: 20190808, end: 20190808
  3. VENCLYXTO [Suspect]
     Active Substance: VENETOCLAX
     Indication: CHRONIC LYMPHOCYTIC LEUKAEMIA
     Route: 048
     Dates: start: 201908, end: 20190815
  4. VENCLYXTO [Suspect]
     Active Substance: VENETOCLAX
     Route: 048
     Dates: start: 20190816, end: 20190822

REACTIONS (20)
  - Hyperuricaemia [Recovered/Resolved]
  - Hypogammaglobulinaemia [Unknown]
  - Dyspnoea [Recovered/Resolved]
  - Tumour lysis syndrome [Not Recovered/Not Resolved]
  - Anaemia [Recovered/Resolved]
  - Chronic kidney disease [Recovered/Resolved]
  - Oedema peripheral [Unknown]
  - Oedema [Recovered/Resolved]
  - Hyperkalaemia [Recovered/Resolved with Sequelae]
  - Chronic lymphocytic leukaemia [Unknown]
  - Dyspnoea exertional [Recovered/Resolved]
  - Productive cough [Recovered/Resolved]
  - Abdominal pain upper [Not Recovered/Not Resolved]
  - Richter^s syndrome [Fatal]
  - Chronic kidney disease [Not Recovered/Not Resolved]
  - Tumour lysis syndrome [Unknown]
  - General physical health deterioration [Fatal]
  - Abdominal pain [Not Recovered/Not Resolved]
  - Hypocalcaemia [Recovered/Resolved]
  - Hyperkalaemia [Not Recovered/Not Resolved]

NARRATIVE: CASE EVENT DATE: 2019
